FAERS Safety Report 8693244 (Version 2)
Quarter: 2012Q4

REPORT INFORMATION
  Report Type: 
  Country: US (occurrence: US)
  Receive Date: 20120730
  Receipt Date: 20121116
  Transmission Date: 20130627
  Serious: Yes (Other)
  Sender: FDA-Public Use
  Company Number: US-BAYER-2012-072371

PATIENT
  Age: 31 Year
  Sex: Female
  Weight: 90.7 kg

DRUGS (6)
  1. OCELLA [Suspect]
     Dosage: UNK
     Dates: start: 200912, end: 201007
  2. YASMIN [Suspect]
  3. PREDNISON [Concomitant]
     Dosage: 5 mg, 6 tablets, QD
     Dates: start: 20100425
  4. ZANTAC [Concomitant]
     Dosage: 150 mg, QD
     Dates: start: 20100703
  5. OMEPRAZOLE [Concomitant]
     Dosage: 20 mg, QD
     Dates: start: 20100703
  6. PREVACID [Concomitant]
     Indication: HEARTBURN

REACTIONS (4)
  - Pulmonary embolism [None]
  - Injury [None]
  - Pain [None]
  - Pain [None]
